FAERS Safety Report 18256368 (Version 1)
Quarter: 2020Q3

REPORT INFORMATION
  Report Type: Spontaneous
  Country: US (occurrence: US)
  Receive Date: 20200910
  Receipt Date: 20200910
  Transmission Date: 20201103
  Serious: Yes (Hospitalization)
  Sender: FDA-Public Use
  Company Number: None

PATIENT
  Age: 64 Year
  Sex: Male

DRUGS (13)
  1. HUMIRA [Concomitant]
     Active Substance: ADALIMUMAB
  2. ONDANSETRON [Concomitant]
     Active Substance: ONDANSETRON
  3. CARVEDILOL. [Concomitant]
     Active Substance: CARVEDILOL
  4. REPATHA [Suspect]
     Active Substance: EVOLOCUMAB
     Indication: COLITIS
     Dosage: ?          OTHER DOSE:1 SYR;?
     Route: 058
     Dates: start: 20180824
  5. CLOBEX [Concomitant]
     Active Substance: CLOBETASOL PROPIONATE
  6. VANCOMYCIN [Concomitant]
     Active Substance: VANCOMYCIN
  7. CLOPIDOGREL [Concomitant]
     Active Substance: CLOPIDOGREL BISULFATE
  8. DIPHEN/ATROP [Concomitant]
     Active Substance: ATROPINE SULFATE\DIPHENOXYLATE
  9. COLESTIPOL [Concomitant]
     Active Substance: COLESTIPOL
  10. GLYCOPYRROL [Concomitant]
  11. METRONIDAZOL [Concomitant]
     Active Substance: METRONIDAZOLE
  12. LEVOFLOXACIN. [Concomitant]
     Active Substance: LEVOFLOXACIN
  13. MECLIZINE [Concomitant]
     Active Substance: MECLIZINE HYDROCHLORIDE

REACTIONS (4)
  - Syncope [None]
  - Condition aggravated [None]
  - Diarrhoea [None]
  - Heart rate irregular [None]

NARRATIVE: CASE EVENT DATE: 20200813
